FAERS Safety Report 6696392-3 (Version None)
Quarter: 2010Q2

REPORT INFORMATION
  Report Type: 
  Country: None (occurrence: None)
  Receive Date: 20100426
  Receipt Date: 20100415
  Transmission Date: 20101027
  Serious: Yes (Hospitalization, Other)
  Sender: FDA-Public Use
  Company Number: IT-ELI_LILLY_AND_COMPANY-IT201004000181

PATIENT
  Sex: Male

DRUGS (2)
  1. HUMALOG MIX 50/50 [Suspect]
     Dosage: UNK, 2/D
  2. HUMALOG [Suspect]
     Dosage: UNK, EACH EVENING

REACTIONS (7)
  - ACCIDENTAL OVERDOSE [None]
  - ACETONAEMIA [None]
  - BLOOD GLUCOSE INCREASED [None]
  - DIARRHOEA [None]
  - DRUG DISPENSING ERROR [None]
  - GASTROENTERITIS [None]
  - HYPOGLYCAEMIC COMA [None]
